FAERS Safety Report 7735975-6 (Version None)
Quarter: 2011Q3

REPORT INFORMATION
  Report Type: 
  Country: None (occurrence: None)
  Receive Date: 20110908
  Receipt Date: 20101129
  Transmission Date: 20111222
  Serious: No
  Sender: FDA-Public Use
  Company Number: US-BAYER-US-2006-026265

PATIENT
  Age: 31 Year
  Sex: Female
  Weight: 54.545 kg

DRUGS (2)
  1. LEVOTHYROXINE SODIUM [Concomitant]
  2. MIRENA [Suspect]
     Indication: CONTRACEPTION
     Dosage: 20 ?G/DAY, CONT
     Route: 015
     Dates: start: 20060301

REACTIONS (5)
  - OVARIAN CYST [None]
  - HORMONE LEVEL ABNORMAL [None]
  - WEIGHT INCREASED [None]
  - AMENORRHOEA [None]
  - HEADACHE [None]
